FAERS Safety Report 14610404 (Version 1)
Quarter: 2018Q1

REPORT INFORMATION
  Report Type: Report from Study
  Country: US (occurrence: US)
  Receive Date: 20180307
  Receipt Date: 20180307
  Transmission Date: 20180509
  Serious: Yes (Hospitalization)
  Sender: FDA-Public Use
  Company Number: US-EXELIXIS-XL18418012685

PATIENT
  Age: 68 Year
  Sex: Male
  Weight: 62.59 kg

DRUGS (2)
  1. XL184 [Suspect]
     Active Substance: CABOZANTINIB
     Dosage: 40 MG, QD
     Route: 048
     Dates: start: 201712
  2. XL184 [Suspect]
     Active Substance: CABOZANTINIB
     Indication: PAPILLARY THYROID CANCER
     Dosage: 60 MG, QD
     Route: 048
     Dates: start: 20170504

REACTIONS (1)
  - Odynophagia [Unknown]

NARRATIVE: CASE EVENT DATE: 20180219
